FAERS Safety Report 6170541-8 (Version None)
Quarter: 2009Q2

REPORT INFORMATION
  Report Type: 
  Country: None (occurrence: None)
  Receive Date: 20090428
  Receipt Date: 20090421
  Transmission Date: 20091009
  Serious: Yes (Death, Other)
  Sender: FDA-Public Use
  Company Number: US-BAXTER-2009BH006694

PATIENT
  Sex: Male

DRUGS (1)
  1. HEPARIN SODIUM INJECTION [Suspect]
     Indication: CARDIAC DISORDER
     Route: 065
     Dates: start: 20080212

REACTIONS (2)
  - DEATH [None]
  - HYPERSENSITIVITY [None]
